FAERS Safety Report 21170358 (Version 7)
Quarter: 2023Q2

REPORT INFORMATION
  Report Type: Other
  Country: JP (occurrence: JP)
  Receive Date: 20220804
  Receipt Date: 20230601
  Transmission Date: 20230721
  Serious: Yes (Hospitalization, Other)
  Sender: FDA-Public Use
  Company Number: JP-CHUGAI-A2021016855

PATIENT
  Age: 72 Year
  Sex: Male
  Weight: 44.7 kg

DRUGS (6)
  1. ATEZOLIZUMAB [Suspect]
     Active Substance: ATEZOLIZUMAB
     Indication: Sarcomatoid carcinoma of the lung
     Dosage: 1200 MILLIGRAM
     Route: 041
     Dates: start: 20210217
  2. ATEZOLIZUMAB [Suspect]
     Active Substance: ATEZOLIZUMAB
     Dosage: 1200 MILLIGRAM
     Route: 041
     Dates: end: 20220511
  3. ABRAXANE [Suspect]
     Active Substance: PACLITAXEL
     Indication: Sarcomatoid carcinoma of the lung
     Dosage: 135MG,1 TIMES IN
     Route: 041
     Dates: start: 20210217, end: 2021
  4. ABRAXANE [Suspect]
     Active Substance: PACLITAXEL
     Dosage: 120MG,1 TIMES IN, MOST RECENT DOSE ON 22/DEC/2021
     Route: 041
     Dates: start: 20210319, end: 20211222
  5. CARBOPLATIN [Concomitant]
     Active Substance: CARBOPLATIN
     Indication: Sarcomatoid carcinoma of the lung
     Dosage: 425MG,1 TIMES IN
     Route: 041
     Dates: start: 20210217, end: 2021
  6. CARBOPLATIN [Concomitant]
     Active Substance: CARBOPLATIN
     Dosage: 385MG,1 TIMES IN
     Route: 041

REACTIONS (10)
  - Pulmonary toxicity [Recovering/Resolving]
  - Acute respiratory failure [Recovered/Resolved]
  - Rib fracture [Recovering/Resolving]
  - Haemoptysis [Recovering/Resolving]
  - Tumour haemorrhage [Unknown]
  - Osteolysis [Unknown]
  - C-reactive protein increased [Recovering/Resolving]
  - Arthralgia [Recovered/Resolved]
  - Weight decreased [Recovering/Resolving]
  - Infection [Unknown]

NARRATIVE: CASE EVENT DATE: 20210222
